FAERS Safety Report 7940581-4 (Version None)
Quarter: 2011Q4

REPORT INFORMATION
  Report Type: 
  Country: None (occurrence: None)
  Receive Date: 20111128
  Receipt Date: 20111114
  Transmission Date: 20120403
  Serious: Yes (Hospitalization, Other)
  Sender: FDA-Public Use
  Company Number: JP-ELI_LILLY_AND_COMPANY-JP201110004243

PATIENT
  Sex: Male
  Weight: 105 kg

DRUGS (10)
  1. ALMARL [Concomitant]
     Dosage: 10 MG, BID
     Route: 048
  2. ASPIRIN [Concomitant]
     Indication: ACUTE MYOCARDIAL INFARCTION
     Dosage: 100 MG, EACH MORNING
     Route: 048
  3. NEUFAN [Concomitant]
     Dosage: 100 MG, BID
     Route: 048
  4. DOXAZOSIN MESYLATE [Concomitant]
     Dosage: 4 MG, BID
     Route: 048
  5. AMARYL [Concomitant]
     Indication: TYPE 2 DIABETES MELLITUS
     Dosage: 0.5 MG, QD
     Route: 048
     Dates: end: 20111003
  6. BYETTA [Suspect]
     Indication: TYPE 2 DIABETES MELLITUS
     Dosage: 5 UG, BID
     Route: 058
     Dates: start: 20111003, end: 20111013
  7. SIGMART [Concomitant]
     Indication: ACUTE MYOCARDIAL INFARCTION
     Dosage: 5 MG, TID
     Route: 048
  8. LIVALO [Concomitant]
     Dosage: 2 MG, EACH EVENING
     Route: 048
  9. DIART [Concomitant]
     Dosage: 30 MG, QD
     Route: 048
  10. JANUVIA [Concomitant]
     Indication: TYPE 2 DIABETES MELLITUS
     Dosage: 50 MG, QD
     Route: 048
     Dates: end: 20111002

REACTIONS (2)
  - TAKAYASU'S ARTERITIS [None]
  - GASTRIC ULCER HAEMORRHAGE [None]
